FAERS Safety Report 4761789-5 (Version None)
Quarter: 2005Q3

REPORT INFORMATION
  Report Type: 
  Country: None (occurrence: None)
  Receive Date: 20050906
  Receipt Date: 20050826
  Transmission Date: 20060218
  Serious: Yes (Other)
  Sender: FDA-Public Use
  Company Number: PHBS2005JP12605

PATIENT
  Age: 47 Year
  Sex: Male

DRUGS (3)
  1. DIOVAN [Suspect]
     Indication: HYPERTENSION
     Dosage: 80 MG/DAY
     Route: 048
  2. AMLODIN [Concomitant]
     Dosage: 5 MG/DAY
     Route: 048
  3. BEZATOL - SLOW RELEASE [Concomitant]
     Dosage: 20 MG/DAY
     Route: 048

REACTIONS (2)
  - BLOOD PRESSURE DECREASED [None]
  - DEPRESSED LEVEL OF CONSCIOUSNESS [None]
